FAERS Safety Report 4953183-9 (Version None)
Quarter: 2006Q1

REPORT INFORMATION
  Report Type: 
  Country: None (occurrence: None)
  Receive Date: 20060324
  Receipt Date: 20060201
  Transmission Date: 20060701
  Serious: Yes (Hospitalization, Other)
  Sender: FDA-Public Use
  Company Number: US-MERCK-0602USA00273

PATIENT
  Age: 85 Year
  Sex: Female
  Weight: 63 kg

DRUGS (4)
  1. VIOXX [Suspect]
     Indication: ARTHRITIS
     Route: 048
     Dates: start: 20031101, end: 20040801
  2. LISINOPRIL [Concomitant]
     Route: 065
  3. ASPIRIN [Concomitant]
     Route: 065
  4. TOPROL-XL [Concomitant]
     Route: 065

REACTIONS (4)
  - CARDIAC DISORDER [None]
  - CEREBROVASCULAR ACCIDENT [None]
  - HEART RATE IRREGULAR [None]
  - INTESTINAL OBSTRUCTION [None]
